FAERS Safety Report 22206321 (Version 1)
Quarter: 2023Q2

REPORT INFORMATION
  Report Type: Spontaneous
  Country: US (occurrence: US)
  Receive Date: 20230413
  Receipt Date: 20230413
  Transmission Date: 20230721
  Serious: No
  Sender: FDA-Public Use
  Company Number: US-drreddys-SPO/USA/23/0162345

PATIENT
  Sex: Female

DRUGS (1)
  1. HABITROL [Suspect]
     Active Substance: NICOTINE
     Indication: Product used for unknown indication
     Route: 062

REACTIONS (3)
  - Dyspnoea [Unknown]
  - Application site pruritus [Unknown]
  - Application site pain [Unknown]
